FAERS Safety Report 14781451 (Version 2)
Quarter: 2018Q2

REPORT INFORMATION
  Report Type: Report from Study
  Country: None (occurrence: US)
  Receive Date: 20180419
  Receipt Date: 20180524
  Transmission Date: 20180711
  Serious: Yes (Other)
  Sender: FDA-Public Use
  Company Number: US-ABBVIE-18K-163-2326753-00

PATIENT
  Age: 64 Year
  Sex: Male
  Weight: 108.05 kg

DRUGS (1)
  1. HUMIRA [Suspect]
     Active Substance: ADALIMUMAB
     Indication: PSORIASIS
     Route: 058
     Dates: start: 201212

REACTIONS (3)
  - Myocardial infarction [Recovered/Resolved]
  - Contusion [Not Recovered/Not Resolved]
  - Coronary artery occlusion [Unknown]

NARRATIVE: CASE EVENT DATE: 20171005
